FAERS Safety Report 8087471-7 (Version None)
Quarter: 2012Q1

REPORT INFORMATION
  Report Type: 
  Country: None (occurrence: None)
  Receive Date: 20120128
  Receipt Date: 20110524
  Transmission Date: 20120608
  Serious: No
  Sender: FDA-Public Use
  Company Number: US-ABBOTT-11P-163-0728102-00

PATIENT
  Sex: Female
  Weight: 83.99 kg

DRUGS (4)
  1. ADVAIR DISKUS 100/50 [Concomitant]
     Indication: ASTHMA
     Route: 055
  2. ACETAMINOPHEN [Concomitant]
     Indication: CROHN'S DISEASE
  3. SINGULAIR [Concomitant]
     Indication: ASTHMA
  4. HUMIRA [Suspect]
     Indication: CROHN'S DISEASE
     Route: 058
     Dates: start: 20101001

REACTIONS (2)
  - DENTAL CARIES [None]
  - TOOTHACHE [None]
